FAERS Safety Report 20889544 (Version 1)
Quarter: 2022Q2

REPORT INFORMATION
  Report Type: Spontaneous
  Country: GR (occurrence: GR)
  Receive Date: 20220530
  Receipt Date: 20220530
  Transmission Date: 20220720
  Serious: Yes (Other)
  Sender: FDA-Public Use
  Company Number: GR-PFIZER INC-202200698964

PATIENT
  Age: 65 Year
  Sex: Female

DRUGS (2)
  1. KEYTRUDA [Suspect]
     Active Substance: PEMBROLIZUMAB
     Indication: Renal cancer
     Dosage: UNK, CYCLIC (CYCLICAL)
  2. INLYTA [Suspect]
     Active Substance: AXITINIB
     Indication: Renal cancer
     Dosage: 10 MILLIGRAM, QD (5 MG, 2X/DAY)
     Route: 048

REACTIONS (1)
  - Psoriasis [Recovering/Resolving]
